FAERS Safety Report 22369270 (Version 1)
Quarter: 2023Q2

REPORT INFORMATION
  Report Type: Report from Study
  Country: US (occurrence: US)
  Receive Date: 20230526
  Receipt Date: 20230526
  Transmission Date: 20230722
  Serious: No
  Sender: FDA-Public Use
  Company Number: US-ACADIA PHARMACEUTICALS INC.-ACA-2023-PIM-001676

PATIENT
  Sex: Male

DRUGS (11)
  1. NUPLAZID [Suspect]
     Active Substance: PIMAVANSERIN TARTRATE
     Indication: Parkinson^s disease psychosis
     Dosage: 34 MILLIGRAM, QD
     Route: 048
     Dates: start: 20230223, end: 20230415
  2. AMLODIPINE [Concomitant]
     Active Substance: AMLODIPINE BESYLATE
  3. CHOLECALCIFEROL [Concomitant]
     Active Substance: CHOLECALCIFEROL
  4. DOCUSATE [Concomitant]
     Active Substance: DOCUSATE
  5. DONEPEZIL [Concomitant]
     Active Substance: DONEPEZIL
  6. FINASTERIDE [Concomitant]
     Active Substance: FINASTERIDE
  7. MELOXICAM [Concomitant]
     Active Substance: MELOXICAM
  8. MIRTAZAPINE [Concomitant]
     Active Substance: MIRTAZAPINE
  9. QUETIAPINE [Concomitant]
     Active Substance: QUETIAPINE
  10. SELEGILINE [Concomitant]
     Active Substance: SELEGILINE
  11. TAMSULOSIN [Concomitant]
     Active Substance: TAMSULOSIN

REACTIONS (2)
  - Somnambulism [Recovered/Resolved]
  - Somnolence [Recovered/Resolved]
